FAERS Safety Report 8918159 (Version 1)
Quarter: 2012Q4

REPORT INFORMATION
  Report Type: 
  Country: US (occurrence: US)
  Receive Date: 20121120
  Receipt Date: 20121120
  Transmission Date: 20130627
  Serious: No
  Sender: FDA-Public Use
  Company Number: US-ASTRAZENECA-2012SE22654

PATIENT
  Sex: Female
  Weight: 58.1 kg

DRUGS (3)
  1. NEXIUM [Suspect]
     Indication: GASTRITIS
     Route: 048
     Dates: start: 200804
  2. NEXIUM [Suspect]
     Indication: GASTROOESOPHAGEAL REFLUX DISEASE
     Route: 048
     Dates: start: 200804
  3. NEXIUM [Suspect]
     Indication: HIATUS HERNIA
     Route: 048
     Dates: start: 200804

REACTIONS (10)
  - Decreased appetite [Unknown]
  - Dyspepsia [Unknown]
  - Weight decreased [Unknown]
  - Bone pain [Unknown]
  - Therapeutic product ineffective for unapproved indication [Unknown]
  - Gastrooesophageal reflux disease [Unknown]
  - Osteopenia [Unknown]
  - Off label use [Unknown]
  - Depression [Unknown]
  - Intentional drug misuse [Unknown]
